FAERS Safety Report 14974487 (Version 1)
Quarter: 2018Q2

REPORT INFORMATION
  Report Type: Report from Study
  Country: US (occurrence: US)
  Receive Date: 20180605
  Receipt Date: 20180605
  Transmission Date: 20180711
  Serious: Yes (Death)
  Sender: FDA-Public Use
  Company Number: US-PUMA BIOTECHNOLOGY, LTD.-2018US003526

PATIENT

DRUGS (1)
  1. NERLYNX [Suspect]
     Active Substance: NERATINIB
     Indication: MALIGNANT NIPPLE NEOPLASM
     Dosage: 240 MG (6 TABLETS), DAILY
     Route: 048
     Dates: start: 20180131

REACTIONS (2)
  - Death [Fatal]
  - Hospice care [Unknown]
